FAERS Safety Report 14305051 (Version 1)
Quarter: 2017Q4

REPORT INFORMATION
  Report Type: Report from Study
  Country: JP (occurrence: JP)
  Receive Date: 20171219
  Receipt Date: 20171219
  Transmission Date: 20180321
  Serious: Yes (Hospitalization)
  Sender: FDA-Public Use
  Company Number: JP-OTSUKA-000787

PATIENT
  Age: 26 Year
  Sex: Female

DRUGS (7)
  1. RISPERDAL [Concomitant]
     Active Substance: RISPERIDONE
     Indication: SCHIZOPHRENIA
     Dosage: 2 MG, QD
     Route: 048
     Dates: start: 20071228, end: 20080131
  2. ARIPIPRAZOLE. [Suspect]
     Active Substance: ARIPIPRAZOLE
     Indication: SCHIZOPHRENIA
     Dosage: 12 MG, QD
     Route: 048
     Dates: start: 20080131, end: 20080204
  3. RISPERDAL [Concomitant]
     Active Substance: RISPERIDONE
     Dosage: UNK
     Route: 065
  4. ARIPIPRAZOLE. [Suspect]
     Active Substance: ARIPIPRAZOLE
     Dosage: 6 MG, QD
     Route: 048
     Dates: start: 20080312, end: 20080317
  5. ARIPIPRAZOLE. [Suspect]
     Active Substance: ARIPIPRAZOLE
     Dosage: 18 MG, QD
     Route: 048
     Dates: start: 20080214, end: 20080304
  6. ARIPIPRAZOLE. [Suspect]
     Active Substance: ARIPIPRAZOLE
     Dosage: 12 MG, QD
     Route: 048
     Dates: start: 20080305, end: 20080311
  7. ARIPIPRAZOLE. [Suspect]
     Active Substance: ARIPIPRAZOLE
     Dosage: 24 MG, QD
     Route: 048
     Dates: start: 20080205, end: 20080213

REACTIONS (3)
  - Thinking abnormal [Recovering/Resolving]
  - Akathisia [Recovering/Resolving]
  - Restlessness [Recovering/Resolving]

NARRATIVE: CASE EVENT DATE: 20080205
